FAERS Safety Report 10879533 (Version 1)
Quarter: 2015Q1

REPORT INFORMATION
  Report Type: Report from Study
  Country: US (occurrence: US)
  Receive Date: 20150302
  Receipt Date: 20150302
  Transmission Date: 20150721
  Serious: Yes (Death, Other)
  Sender: FDA-Public Use
  Company Number: US-ASTELLAS-2015US006526

PATIENT
  Age: 75 Year
  Sex: Male

DRUGS (11)
  1. AVASTIN [Suspect]
     Active Substance: BEVACIZUMAB
     Indication: RENAL CANCER
     Dosage: 100 ML IV FLUID OVER 30 MIN (550 MG, EVERY 2 WEEKS)
     Route: 042
     Dates: start: 20060117, end: 20060502
  2. AVASTIN [Suspect]
     Active Substance: BEVACIZUMAB
     Indication: MALIGNANT URINARY TRACT NEOPLASM
  3. ERLOTINIB [Suspect]
     Active Substance: ERLOTINIB
     Indication: METASTASES TO LUNG
  4. CELEBREX [Concomitant]
     Active Substance: CELECOXIB
     Indication: PRODUCT USED FOR UNKNOWN INDICATION
     Dosage: UNK UNK, UNKNOWN FREQ.
     Route: 065
  5. PLAQUENIL [Concomitant]
     Active Substance: HYDROXYCHLOROQUINE SULFATE
     Indication: PRODUCT USED FOR UNKNOWN INDICATION
     Dosage: UNK UNK, UNKNOWN FREQ.
     Route: 065
  6. OXYCONTIN [Concomitant]
     Active Substance: OXYCODONE HYDROCHLORIDE
     Indication: RHEUMATOID ARTHRITIS
     Dosage: UNK UNK, UNKNOWN FREQ.
     Route: 065
  7. ERLOTINIB [Suspect]
     Active Substance: ERLOTINIB
     Indication: RENAL CANCER
     Route: 048
  8. DARVOCET [Concomitant]
     Active Substance: ACETAMINOPHEN\PROPOXYPHENE HYDROCHLORIDE
     Indication: RHEUMATOID ARTHRITIS
     Dosage: UNK UNK, UNKNOWN FREQ.
     Route: 065
  9. AVASTIN [Suspect]
     Active Substance: BEVACIZUMAB
     Indication: LUNG NEOPLASM MALIGNANT
  10. AVASTIN [Suspect]
     Active Substance: BEVACIZUMAB
     Indication: RENAL CANCER
  11. KEFLEX [Concomitant]
     Active Substance: CEPHALEXIN
     Indication: PRODUCT USED FOR UNKNOWN INDICATION
     Dosage: UNK UNK, UNKNOWN FREQ.
     Route: 065

REACTIONS (22)
  - Diarrhoea [Unknown]
  - Skin exfoliation [Unknown]
  - Staphylococcal infection [Unknown]
  - Contusion [Unknown]
  - Abdominal pain [Unknown]
  - Mucosal inflammation [Unknown]
  - Skin reaction [Unknown]
  - Depression [Unknown]
  - Death [Fatal]
  - Petechiae [Unknown]
  - Arthritis [Unknown]
  - Cough [Unknown]
  - Dyspnoea [Unknown]
  - Off label use [Unknown]
  - Rash [Unknown]
  - Arthralgia [Unknown]
  - Vascular calcification [Unknown]
  - Constipation [Unknown]
  - Fall [Unknown]
  - Rheumatoid nodule [Unknown]
  - Proteinuria [Unknown]
  - Fatigue [Unknown]

NARRATIVE: CASE EVENT DATE: 20060908
